FAERS Safety Report 17733631 (Version 1)
Quarter: 2020Q2

REPORT INFORMATION
  Report Type: Spontaneous
  Country: US (occurrence: US)
  Receive Date: 20200501
  Receipt Date: 20200501
  Transmission Date: 20200714
  Serious: Yes (Hospitalization)
  Sender: FDA-Public Use
  Company Number: None

PATIENT
  Age: 7 Year
  Sex: Male
  Weight: 27 kg

DRUGS (4)
  1. VINCRISTINE [Suspect]
     Active Substance: VINCRISTINE
     Dates: end: 20200421
  2. METHOTREXATE. [Suspect]
     Active Substance: METHOTREXATE
     Dates: end: 20200423
  3. PREDNISONE. [Suspect]
     Active Substance: PREDNISONE
     Dates: end: 20200301
  4. MERCAPTOPURINE. [Suspect]
     Active Substance: MERCAPTOPURINE
     Dates: end: 20200427

REACTIONS (4)
  - Septic shock [None]
  - Clostridium bacteraemia [None]
  - Gastroenteritis Escherichia coli [None]
  - Pulse absent [None]

NARRATIVE: CASE EVENT DATE: 20200427
